FAERS Safety Report 8089408-3 (Version None)
Quarter: 2012Q1

REPORT INFORMATION
  Report Type: 
  Country: None (occurrence: None)
  Receive Date: 20120128
  Receipt Date: 20110823
  Transmission Date: 20120608
  Serious: No
  Sender: FDA-Public Use
  Company Number: US-ABBOTT-11P-163-0724287-00

PATIENT
  Age: 59 Year
  Sex: Female

DRUGS (14)
  1. ATENOLOL [Concomitant]
     Indication: BLOOD PRESSURE
  2. LIPITOR [Concomitant]
     Indication: BLOOD TRIGLYCERIDES INCREASED
     Dosage: ONCE AT BEDTIME
  3. FOLIC ACID [Concomitant]
     Indication: PRODUCT USED FOR UNKNOWN INDICATION
  4. TYLENOL W/ CODEINE NO. 2 [Concomitant]
     Indication: PAIN
  5. ECONAZOLE NITRATE [Concomitant]
     Indication: FUNGAL SKIN INFECTION
     Dosage: UNDER BREAST ONCE DAILY
  6. NORVASC [Concomitant]
     Indication: BLOOD PRESSURE
  7. SULFASALAZINE [Concomitant]
     Indication: PSORIATIC ARTHROPATHY
  8. METHOTREXATE [Concomitant]
     Indication: ARTHRITIS
  9. VOLTAREN [Concomitant]
     Indication: ARTHRITIS
     Dosage: GEL 1G TO KNEES QUARTER GRAM TO KNUCKLES
  10. XYZAL [Concomitant]
     Indication: SEASONAL ALLERGY
  11. HUMIRA [Suspect]
     Indication: PSORIATIC ARTHROPATHY
     Dates: start: 20101201
  12. HYDROCHLOROTHIAZIDE [Concomitant]
     Indication: BLOOD PRESSURE
  13. FEMARA [Concomitant]
     Indication: BREAST CANCER
  14. FLONASE [Concomitant]
     Indication: PHARYNGEAL DISORDER
     Dosage: SPRAY
     Route: 045

REACTIONS (15)
  - MUSCULOSKELETAL PAIN [None]
  - BLOOD TRIGLYCERIDES INCREASED [None]
  - DRY MOUTH [None]
  - BACK PAIN [None]
  - TEMPOROMANDIBULAR JOINT SYNDROME [None]
  - INJECTION SITE ERYTHEMA [None]
  - INJECTION SITE NODULE [None]
  - ORAL CANDIDIASIS [None]
  - MIGRAINE [None]
  - INJECTION SITE REACTION [None]
  - INJECTION SITE PRURITUS [None]
  - DYSPHAGIA [None]
  - MASS [None]
  - FIBROMYALGIA [None]
  - DRY THROAT [None]
